FAERS Safety Report 8360154-1 (Version None)
Quarter: 2012Q2

REPORT INFORMATION
  Report Type: 
  Country: None (occurrence: None)
  Receive Date: 20120515
  Receipt Date: 20110620
  Transmission Date: 20120825
  Serious: No
  Sender: FDA-Public Use
  Company Number: US-ALEXION-A201100912

PATIENT
  Sex: Male

DRUGS (2)
  1. IRON [Concomitant]
     Dosage: UNK
     Route: 042
  2. SOLIRIS [Suspect]
     Indication: PAROXYSMAL NOCTURNAL HAEMOGLOBINURIA
     Dosage: UNK
     Route: 042

REACTIONS (3)
  - DYSPNOEA [None]
  - BLOOD COUNT ABNORMAL [None]
  - MALAISE [None]
